FAERS Safety Report 9800727 (Version 1)
Quarter: 2014Q1

REPORT INFORMATION
  Report Type: Report from Study
  Country: US (occurrence: US)
  Receive Date: 20140107
  Receipt Date: 20140107
  Transmission Date: 20141002
  Serious: Yes (Other)
  Sender: FDA-Public Use
  Company Number: US-BAYER-2014-001258

PATIENT
  Age: 88 Year
  Sex: Male

DRUGS (2)
  1. XOFOGO [Suspect]
     Indication: PROSTATE CANCER METASTATIC
     Dosage: DOSE REGIMEN: MONTHLY, ROUTE: INFUSION
     Dates: start: 20131121
  2. XOFOGO [Suspect]
     Indication: METASTASES TO BONE

REACTIONS (1)
  - Bone marrow failure [None]
